FAERS Safety Report 4295340-3 (Version None)
Quarter: 2004Q1

REPORT INFORMATION
  Report Type: 
  Country: None (occurrence: None)
  Receive Date: 20040216
  Receipt Date: 20030618
  Transmission Date: 20041129
  Serious: No
  Sender: FDA-Public Use
  Company Number: US-GLAXOSMITHKLINE-A0413091A

PATIENT
  Age: 28 Year
  Sex: Female
  Weight: 68.2 kg

DRUGS (5)
  1. LAMICTAL [Suspect]
     Dosage: 600MG UNKNOWN
     Route: 048
  2. WELLBUTRIN [Suspect]
     Dosage: 300MG UNKNOWN
     Route: 048
  3. PROZAC [Concomitant]
     Dosage: 90MG WEEKLY
     Route: 065
  4. INDERAL LA [Concomitant]
     Dosage: 60MG UNKNOWN
     Route: 065
  5. LO/OVRAL [Concomitant]

REACTIONS (6)
  - CHILLS [None]
  - DEJA VU [None]
  - HALLUCINATION [None]
  - HYPOKINESIA [None]
  - POLLAKIURIA [None]
  - STEREOTYPY [None]
